FAERS Safety Report 16136812 (Version 1)
Quarter: 2019Q1

REPORT INFORMATION
  Report Type: Spontaneous
  Country: FR (occurrence: FR)
  Receive Date: 20190329
  Receipt Date: 20190329
  Transmission Date: 20190418
  Serious: Yes (Hospitalization)
  Sender: FDA-Public Use
  Company Number: PHHY2019FR069611

PATIENT
  Age: 68 Year
  Sex: Male
  Weight: 86 kg

DRUGS (11)
  1. TAMSULOSINE MYLAN [Concomitant]
     Active Substance: TAMSULOSIN HYDROCHLORIDE
     Indication: BENIGN PROSTATIC HYPERPLASIA
     Dosage: 1 DF, QD
     Route: 048
     Dates: end: 20190120
  2. PREGABALINE SANDOZ [Concomitant]
     Indication: NEURALGIA
     Dosage: 3 DF, QD
     Route: 048
     Dates: start: 20190117, end: 20190120
  3. FUROSEMIDE ARROW [Suspect]
     Active Substance: FUROSEMIDE
     Indication: CARDIAC FAILURE
     Dosage: 1 DF, QD
     Route: 048
     Dates: start: 20190107
  4. FINASTERIDE ACCORD [Concomitant]
     Active Substance: FINASTERIDE
     Indication: BENIGN PROSTATIC HYPERPLASIA
     Dosage: 1 DF, QD
     Route: 048
     Dates: start: 20190113, end: 20190120
  5. BACTRIM [Suspect]
     Active Substance: SULFAMETHOXAZOLE\TRIMETHOPRIM
     Indication: PROSTATITIS
     Dosage: 2 DF, QD
     Route: 048
     Dates: start: 20190114, end: 20190120
  6. BACLOFEN. [Concomitant]
     Active Substance: BACLOFEN
     Indication: PARAPLEGIA
     Dosage: 80 MG, QD
     Route: 048
     Dates: end: 20190120
  7. ESOMEPRAZOLE ARROW [Concomitant]
     Active Substance: ESOMEPRAZOLE MAGNESIUM
     Indication: THROMBOANGIITIS OBLITERANS
     Dosage: 1 DF, QD
     Route: 048
     Dates: start: 20190111, end: 20190120
  8. DIFFU K [Concomitant]
     Active Substance: POTASSIUM CHLORIDE
     Indication: MINERAL SUPPLEMENTATION
     Dosage: 3 DF, QD
     Route: 048
     Dates: start: 20190111, end: 20190120
  9. ENALAPRIL MALEATE+HYDROCHLOROTHIAZIDE [Suspect]
     Active Substance: ENALAPRIL MALEATE\HYDROCHLOROTHIAZIDE
     Indication: HYPERTENSION
     Dosage: 1 DF, QD (20MG/12.5 MG)
     Route: 048
     Dates: start: 20190111, end: 20190120
  10. XATRAL [Concomitant]
     Active Substance: ALFUZOSIN
     Indication: BENIGN PROSTATIC HYPERPLASIA
     Dosage: 1 DF, QD
     Route: 048
     Dates: start: 20190114, end: 20190120
  11. KARDEGIC [Concomitant]
     Active Substance: ASPIRIN DL-LYSINE
     Indication: THROMBOANGIITIS OBLITERANS
     Dosage: 1 DF, QD
     Route: 048
     Dates: start: 20190111, end: 20190120

REACTIONS (2)
  - Acute kidney injury [Recovered/Resolved]
  - Hyperkalaemia [Recovered/Resolved]

NARRATIVE: CASE EVENT DATE: 201901
